FAERS Safety Report 8829173 (Version 2)
Quarter: 2013Q1

REPORT INFORMATION
  Report Type: Spontaneous
  Country: None (occurrence: None)
  Receive Date: 20121004
  Receipt Date: 20121019
  Transmission Date: 20140127
  Serious: Yes (Other)
  Sender: FDA-Public Use
  Company Number: AUR-APL-2012-04245

PATIENT
  Age: 48 Year
  Sex: Male

DRUGS (5)
  1. ZIDOVUDINE [Suspect]
     Indication: ANTIRETROVIRAL THERAPY
     Dates: start: 20051001
  2. LAMIVUDINE [Suspect]
     Indication: ANTIRETROVIRAL THERAPY
  3. LOPINAVIR [Suspect]
     Indication: ANTIRETROVIRAL THERAPY
  4. RITONAVIR [Suspect]
     Indication: ANTIRETROVIRAL THERAPY
  5. SALMETEROL XINAFOATE + FLUTICASONE PROPIONATE [Suspect]
     Indication: BRONCHIAL HYPERREACTIVITY
     Route: 055

REACTIONS (7)
  - Bronchial hyperreactivity [None]
  - Dysphonia [None]
  - Swelling face [None]
  - Weight increased [None]
  - Parotid gland enlargement [None]
  - Blood cortisol decreased [None]
  - Blood corticotrophin decreased [None]
